FAERS Safety Report 19733113 (Version 1)
Quarter: 2021Q3

REPORT INFORMATION
  Report Type: Other
  Country: CN (occurrence: CN)
  Receive Date: 20210823
  Receipt Date: 20210823
  Transmission Date: 20211014
  Serious: Yes (Other)
  Sender: FDA-Public Use
  Company Number: CN-ROCHE-2894940

PATIENT

DRUGS (4)
  1. TRASTUZUMAB. [Suspect]
     Active Substance: TRASTUZUMAB
     Indication: HER2 POSITIVE GASTRIC CANCER
     Dosage: FIRST LOADING DOSE
     Route: 042
  2. TRASTUZUMAB. [Suspect]
     Active Substance: TRASTUZUMAB
     Dosage: MAINTENANCE THERAPY A TOTAL OF 6 COURSES OF TREATMENT.
     Route: 042
  3. CISPLATIN. [Suspect]
     Active Substance: CISPLATIN
     Indication: HER2 POSITIVE GASTRIC CANCER
     Route: 041
  4. CAPECITABINE. [Suspect]
     Active Substance: CAPECITABINE
     Indication: HER2 POSITIVE GASTRIC CANCER
     Dosage: CONTINUOUS TREATMENT FOR 2 WEEKS, REST FOR 1 WEEK, 3 WEEKS FOR A COURSE OF TREATMENT, A TOTAL OF 6 C
     Route: 048

REACTIONS (1)
  - Myelosuppression [Unknown]
